FAERS Safety Report 24710691 (Version 1)
Quarter: 2024Q4

REPORT INFORMATION
  Report Type: Spontaneous
  Country: US (occurrence: US)
  Receive Date: 20241209
  Receipt Date: 20241209
  Transmission Date: 20250115
  Serious: No
  Sender: Kenvue
  Company Number: US-KENVUE-20241103150

PATIENT

DRUGS (1)
  1. WOMENS ROGAINE UNSCENTED [Suspect]
     Active Substance: MINOXIDIL
     Indication: Lichen planopilaris
     Route: 065

REACTIONS (1)
  - Off label use [Unknown]
